FAERS Safety Report 10213798 (Version 1)
Quarter: 2014Q2

REPORT INFORMATION
  Report Type: Spontaneous
  Country: US (occurrence: None)
  Receive Date: 20140530
  Receipt Date: 20140530
  Transmission Date: 20141212
  Serious: Yes (Hospitalization)
  Sender: FDA-Public Use
  Company Number: 9039997-2014-00039

PATIENT
  Age: 75 Year
  Sex: Male

DRUGS (2)
  1. LEVULAN KERASTICK TOPICAL SOLUTION 20% [Suspect]
     Indication: ACTINIC KERATOSIS
     Dosage: SINGLE
     Route: 061
     Dates: start: 20140430
  2. CIPROFLOXACIN [Concomitant]

REACTIONS (5)
  - Erythema [None]
  - Facial pain [None]
  - Swelling face [None]
  - Oedema [None]
  - Erythema [None]
